FAERS Safety Report 17985663 (Version 3)
Quarter: 2021Q1

REPORT INFORMATION
  Report Type: Spontaneous
  Country: TN (occurrence: TN)
  Receive Date: 20200706
  Receipt Date: 20210203
  Transmission Date: 20210419
  Serious: Yes (Other)
  Sender: FDA-Public Use
  Company Number: TN-JNJFOC-20200637612

PATIENT
  Age: 57 Year
  Sex: Male

DRUGS (1)
  1. ZYTIGA [Suspect]
     Active Substance: ABIRATERONE ACETATE
     Indication: PRODUCT USED FOR UNKNOWN INDICATION
     Dosage: PATIENT RECEIVED DRUG FOR 9 TO 12 MONTHS?1 TABLET, 250 MG, DURING BREAKFAST WITHOUT LIPIDS
     Route: 048

REACTIONS (4)
  - Drug ineffective [Unknown]
  - Nerve injury [Unknown]
  - Diplopia [Recovered/Resolved]
  - Meningitis [Recovered/Resolved]
